FAERS Safety Report 7492060-9 (Version None)
Quarter: 2011Q2

REPORT INFORMATION
  Report Type: 
  Country: None (occurrence: None)
  Receive Date: 20110519
  Receipt Date: 20110506
  Transmission Date: 20111010
  Serious: Yes (Hospitalization, Disabling)
  Sender: FDA-Public Use
  Company Number: US-UCBSA-027075

PATIENT
  Sex: Male

DRUGS (2)
  1. AZATHIOPRINE [Concomitant]
     Indication: CROHN'S DISEASE
  2. CIMZIA [Suspect]
     Indication: CROHN'S DISEASE
     Route: 058
     Dates: start: 20101108

REACTIONS (4)
  - WALKING DISABILITY [None]
  - SMALL INTESTINAL OBSTRUCTION [None]
  - MUSCULOSKELETAL DISCOMFORT [None]
  - MALAISE [None]
